FAERS Safety Report 16869260 (Version 2)
Quarter: 2020Q1

REPORT INFORMATION
  Report Type: Report from Study
  Country: JP (occurrence: JP)
  Receive Date: 20190930
  Receipt Date: 20200228
  Transmission Date: 20200409
  Serious: Yes (Hospitalization, Other)
  Sender: FDA-Public Use
  Company Number: JP-TAKEDA-2019TUS033272

PATIENT
  Age: 61 Year
  Sex: Male
  Weight: 51 kg

DRUGS (6)
  1. PONATINIB [Suspect]
     Active Substance: PONATINIB
     Indication: ACUTE LYMPHOCYTIC LEUKAEMIA
     Dosage: 15 MILLIGRAM, QD
     Route: 048
     Dates: start: 20180514, end: 20190109
  2. PONATINIB [Suspect]
     Active Substance: PONATINIB
     Dosage: 45 MILLIGRAM, QD
     Route: 048
     Dates: start: 20190214, end: 201909
  3. VFEND [Concomitant]
     Active Substance: VORICONAZOLE
     Indication: PNEUMONIA
     Dosage: UNK
     Route: 065
     Dates: start: 20181113
  4. PONATINIB [Suspect]
     Active Substance: PONATINIB
     Dosage: 30 MILLIGRAM, QD
     Route: 048
     Dates: start: 20190110, end: 20190213
  5. PREDNISOLONE. [Concomitant]
     Active Substance: PREDNISOLONE
     Indication: ACUTE LYMPHOCYTIC LEUKAEMIA
     Dosage: UNK
     Route: 065
     Dates: start: 20190206
  6. DASATINIB MONOHYDRATE [Concomitant]
     Active Substance: DASATINIB
     Indication: ACUTE LYMPHOCYTIC LEUKAEMIA
     Dosage: 140 MILLIGRAM, QD
     Route: 065
     Dates: start: 20160331

REACTIONS (4)
  - Arrhythmia [Unknown]
  - Pneumonia [Recovering/Resolving]
  - Acute lymphocytic leukaemia [Unknown]
  - Palpitations [Unknown]

NARRATIVE: CASE EVENT DATE: 20181024
